FAERS Safety Report 12737670 (Version 2)
Quarter: 2018Q2

REPORT INFORMATION
  Report Type: Spontaneous
  Country: US (occurrence: US)
  Receive Date: 20160912
  Receipt Date: 20180515
  Transmission Date: 20180711
  Serious: No
  Sender: FDA-Public Use
  Company Number: US-SA-2016SA116183

PATIENT
  Age: 60 Year
  Sex: Female

DRUGS (6)
  1. TOUJEO [Suspect]
     Active Substance: INSULIN GLARGINE
     Dosage: DOSE:50 UNIT(S)
     Route: 065
  2. TOUJEO [Suspect]
     Active Substance: INSULIN GLARGINE
     Dosage: DOSE:60 UNIT(S)
     Route: 065
  3. VICTOZA [Concomitant]
     Active Substance: LIRAGLUTIDE
  4. NOVOLOG [Concomitant]
     Active Substance: INSULIN ASPART
  5. SOLOSTAR [Concomitant]
     Active Substance: DEVICE
  6. SOLOSTAR [Concomitant]
     Active Substance: DEVICE

REACTIONS (1)
  - Blood glucose increased [Unknown]
